FAERS Safety Report 22765583 (Version 2)
Quarter: 2024Q1

REPORT INFORMATION
  Report Type: Spontaneous
  Country: US (occurrence: US)
  Receive Date: 20230731
  Receipt Date: 20240202
  Transmission Date: 20240410
  Serious: No
  Sender: FDA-Public Use
  Company Number: US-ABBVIE-5346416

PATIENT
  Age: 79 Year
  Sex: Male

DRUGS (3)
  1. LUPRON [Suspect]
     Active Substance: LEUPROLIDE ACETATE
     Indication: Targeted cancer therapy
     Dosage: 22.5 MG
     Route: 030
  2. ENZALUTAMIDE [Suspect]
     Active Substance: ENZALUTAMIDE
     Indication: Prostate cancer metastatic
     Dosage: FORM STRENGTH: 40 MILLIGRAM, 40 MG 4 TABLETS ONCE DAILY
     Route: 048
     Dates: start: 202212
  3. ORGOVYX [Concomitant]
     Active Substance: RELUGOLIX
     Indication: Product used for unknown indication

REACTIONS (14)
  - Back pain [Unknown]
  - Asthenia [Unknown]
  - Asthenia [Unknown]
  - Fatigue [Unknown]
  - Pollakiuria [Unknown]
  - Hair growth abnormal [Unknown]
  - Abdominal discomfort [Unknown]
  - Alopecia [Unknown]
  - Joint swelling [Unknown]
  - Hyperhidrosis [Unknown]
  - Arthralgia [Unknown]
  - Headache [Unknown]
  - Hot flush [Unknown]
  - Dizziness [Unknown]

NARRATIVE: CASE EVENT DATE: 20230221
